FAERS Safety Report 6531938-7 (Version None)
Quarter: 2010Q1

REPORT INFORMATION
  Report Type: 
  Country: None (occurrence: None)
  Receive Date: 20100108
  Receipt Date: 20100105
  Transmission Date: 20100710
  Serious: Yes (Other)
  Sender: FDA-Public Use
  Company Number: JP-BRACCO-002668

PATIENT
  Age: 72 Year
  Sex: Male

DRUGS (9)
  1. MAGNEVIST [Suspect]
     Indication: HEPATIC NEOPLASM MALIGNANT
     Route: 065
     Dates: start: 20020322, end: 20020322
  2. MAGNEVIST [Suspect]
     Indication: NUCLEAR MAGNETIC RESONANCE IMAGING
     Route: 065
     Dates: start: 20070423, end: 20070423
  3. OMNISCAN [Suspect]
     Indication: NUCLEAR MAGNETIC RESONANCE IMAGING
     Route: 065
     Dates: start: 20050811, end: 20050811
  4. OMNISCAN [Suspect]
     Indication: HEPATIC NEOPLASM MALIGNANT
     Route: 065
     Dates: start: 20050811, end: 20050811
  5. CONTRAST MEDIA [Concomitant]
     Route: 065
     Dates: start: 20080616, end: 20080616
  6. CONTRAST MEDIA [Concomitant]
     Route: 065
     Dates: start: 20081208, end: 20081208
  7. PROHANCE [Suspect]
     Indication: NUCLEAR MAGNETIC RESONANCE IMAGING
     Route: 065
     Dates: start: 20060309, end: 20060309
  8. PROHANCE [Suspect]
     Indication: HEPATIC NEOPLASM MALIGNANT
     Route: 065
     Dates: start: 20071204, end: 20071204
  9. PROHANCE [Suspect]
     Route: 065
     Dates: start: 20061010, end: 20061010

REACTIONS (1)
  - NEPHROGENIC SYSTEMIC FIBROSIS [None]
